FAERS Safety Report 7166104-8 (Version None)
Quarter: 2010Q4

REPORT INFORMATION
  Report Type: 
  Country: None (occurrence: None)
  Receive Date: 20101216
  Receipt Date: 20101201
  Transmission Date: 20110411
  Serious: Yes (Other)
  Sender: FDA-Public Use
  Company Number: US-SHIRE-ALL1-2010-06361

PATIENT
  Sex: Female
  Weight: 90.703 kg

DRUGS (6)
  1. ADDERALL XR 10 [Suspect]
     Indication: ATTENTION DEFICIT/HYPERACTIVITY DISORDER
     Dosage: UNK MG, AS REQ'D
     Route: 048
     Dates: start: 20010101
  2. ADDERALL 10 [Suspect]
     Indication: ATTENTION DEFICIT/HYPERACTIVITY DISORDER
     Dosage: UNK MG, AS REQ'D
     Route: 048
  3. DAYTRANA [Concomitant]
     Indication: ATTENTION DEFICIT/HYPERACTIVITY DISORDER
     Dosage: 30 MG, AS REQ'D
     Route: 062
     Dates: start: 20060101
  4. INTUNIV [Concomitant]
     Indication: ATTENTION DEFICIT/HYPERACTIVITY DISORDER
     Dosage: 1 MG, 1X/DAY:QD
     Route: 048
     Dates: start: 20100801, end: 20100801
  5. INTUNIV [Concomitant]
     Dosage: 1 MG, 1X/DAY:QD
     Route: 048
     Dates: start: 20101130
  6. SUPPLEMENTS [Concomitant]
     Indication: SUPPLEMENTATION THERAPY
     Dosage: UNK MG, 1X/DAY:QD
     Route: 048

REACTIONS (4)
  - CARDIAC FLUTTER [None]
  - DRUG PRESCRIBING ERROR [None]
  - HEAD INJURY [None]
  - ROAD TRAFFIC ACCIDENT [None]
